FAERS Safety Report 9474734 (Version 2)
Quarter: 2013Q3

REPORT INFORMATION
  Report Type: Spontaneous
  Country: AU (occurrence: NZ)
  Receive Date: 20130823
  Receipt Date: 20130823
  Transmission Date: 20140515
  Serious: Yes (Hospitalization)
  Sender: FDA-Public Use
  Company Number: NZ-B.I. PHARMACEUTICALS,INC./RIDGEFIELD-2013-AU-00924AU

PATIENT
  Sex: Female

DRUGS (4)
  1. PRADAXA [Suspect]
     Indication: ATRIAL FIBRILLATION
     Dosage: 300 MG
     Dates: end: 20130723
  2. OMEPRAZOLE [Concomitant]
     Dosage: 20 MG
  3. METOPROLOL [Concomitant]
     Dosage: 47.5 MG
  4. DIGOXIN [Concomitant]
     Dosage: 62.5 MCG

REACTIONS (1)
  - Liver function test abnormal [Not Recovered/Not Resolved]
